FAERS Safety Report 9012786 (Version 1)
Quarter: 2013Q1

REPORT INFORMATION
  Report Type: Report from Study
  Country: US (occurrence: US)
  Receive Date: 20130114
  Receipt Date: 20130114
  Transmission Date: 20140127
  Serious: Yes (Other)
  Sender: FDA-Public Use
  Company Number: US-ABBOTT-13P-163-1032880-00

PATIENT
  Age: 78 Year
  Sex: Male

DRUGS (7)
  1. HUMIRA [Suspect]
     Indication: ANKYLOSING SPONDYLITIS
     Dates: start: 2010, end: 201210
  2. ATENOLOL [Concomitant]
     Indication: BLOOD PRESSURE
  3. HYDROCHLOROTHIAZIDE [Concomitant]
     Indication: BLOOD PRESSURE
  4. SUDAFED [Concomitant]
     Indication: SINUS DISORDER
  5. OVER THE COUNTER ALLERGY MEDICATION [Concomitant]
     Indication: SEASONAL ALLERGY
  6. OXYCODONE [Concomitant]
     Indication: PRODUCT USED FOR UNKNOWN INDICATION
  7. METHACARBAMOL [Concomitant]
     Indication: ARTHRITIS
     Dosage: TWICE DAILY

REACTIONS (8)
  - Basal cell carcinoma [Not Recovered/Not Resolved]
  - Wound infection [Unknown]
  - Impaired healing [Unknown]
  - Sinusitis [Recovering/Resolving]
  - Nasopharyngitis [Unknown]
  - Infection susceptibility increased [Unknown]
  - Laceration [Unknown]
  - Inappropriate schedule of drug administration [Unknown]
